FAERS Safety Report 9122763 (Version 6)
Quarter: 2014Q1

REPORT INFORMATION
  Report Type: Spontaneous
  Country: US (occurrence: US)
  Receive Date: 20130115
  Receipt Date: 20140306
  Transmission Date: 20141002
  Serious: Yes (Other)
  Sender: FDA-Public Use
  Company Number: US-UCBSA-074864

PATIENT
  Age: 54 Year
  Sex: Male
  Weight: 124 kg

DRUGS (18)
  1. VIMPAT [Suspect]
     Indication: CONVULSION
     Dosage: UNKNOWN DOSE
     Route: 048
     Dates: start: 201106, end: 2011
  2. VIMPAT [Suspect]
     Indication: CONVULSION
     Dosage: 200 MG 2/DAY
     Route: 048
  3. VIMPAT [Suspect]
     Indication: CONVULSION
     Route: 048
     Dates: start: 2013
  4. KEPPRA XR [Suspect]
     Indication: CONVULSION
     Dosage: 500 MG, 4 TABLETS ONCE A DAY
     Route: 048
     Dates: start: 201201
  5. KEPPRA XR [Suspect]
     Indication: CONVULSION
     Dosage: 500 MG TABLETS FOUR
     Route: 048
  6. KEPPRA XR [Suspect]
     Indication: CONVULSION
     Dosage: 500 MG 5 TABLETS ONCE A DAY IN NOON
     Route: 048
     Dates: start: 2013
  7. DILANTIN [Concomitant]
     Indication: CONVULSION
     Dosage: UNKNOWN DOSE
     Dates: start: 2009
  8. DILANTIN [Concomitant]
     Indication: CONVULSION
     Dosage: CHEWABLE TABLET 2 DAILY, THEN 1 DAILY FOR 6 WEEKS DAILY
  9. ATIVAN [Concomitant]
     Dosage: 1 MG TABLET  0.5 - 1 TABLET ONCE IN 8 HOURS AS REQUIRED
  10. LANTUS [Concomitant]
     Dosage: UNKNOWN DOSE
  11. NOVOLOG [Concomitant]
     Dosage: UNKNOWN DOSE
  12. NITROSTAT [Concomitant]
     Dosage: UNKNOWN DOSE
  13. ADVAIR DISKUS [Concomitant]
     Dosage: UNKNOWN DOSE
  14. SPIRIVA HANDIHALER [Concomitant]
     Dosage: UNKNOWN DOSE
  15. BENICAR [Concomitant]
     Dosage: UNKNOWN DOSE
  16. METOPROLOL SUCCINATE [Concomitant]
     Dosage: UNKNOWN DOSE
  17. LIPITOR [Concomitant]
     Dosage: UNKNOWN DOSE
  18. ASPIRIN [Concomitant]

REACTIONS (6)
  - Convulsion [Recovering/Resolving]
  - Diplopia [Unknown]
  - Anxiety [Unknown]
  - Fatigue [Unknown]
  - Inappropriate schedule of drug administration [Unknown]
  - Overdose [Unknown]
